FAERS Safety Report 18605229 (Version 1)
Quarter: 2020Q4

REPORT INFORMATION
  Report Type: Spontaneous
  Country: CN (occurrence: CN)
  Receive Date: 20201211
  Receipt Date: 20201211
  Transmission Date: 20210114
  Serious: Yes (Hospitalization, Other)
  Sender: FDA-Public Use
  Company Number: CN-009507513-2012CHN003447

PATIENT
  Age: 60 Year
  Sex: Male

DRUGS (9)
  1. MOXIFLOXACIN. [Concomitant]
     Active Substance: MOXIFLOXACIN
     Indication: INFECTION
     Dosage: UNK
     Dates: start: 20201119, end: 20201122
  2. REMIFENTANIL HYDROCHLORIDE. [Concomitant]
     Active Substance: REMIFENTANIL HYDROCHLORIDE
     Indication: SEDATION
     Dosage: UNK
     Dates: start: 20201119, end: 20201123
  3. ATROPINE. [Concomitant]
     Active Substance: ATROPINE
     Dosage: 1 MILLIGRAM, 3 TIMES
     Route: 040
     Dates: start: 20201119, end: 20201119
  4. SODIUM CHLORIDE. [Concomitant]
     Active Substance: SODIUM CHLORIDE
     Dosage: 100 MILLILITER, TID
     Route: 041
     Dates: start: 20201122, end: 20201127
  5. MIDAZOLAM. [Concomitant]
     Active Substance: MIDAZOLAM
     Indication: SEDATION
     Dosage: UNK
     Dates: start: 20201119, end: 20201123
  6. PROPOFOL. [Concomitant]
     Active Substance: PROPOFOL
     Indication: SEDATION
     Dosage: UNK
     Dates: start: 20201119, end: 20201123
  7. PENEHYCLIDINE HYDROCHLORIDE [Suspect]
     Active Substance: PENEHYCLIDINE HYDROCHLORIDE
     Indication: CHEMICAL POISONING
     Dosage: 2 MILLIGRAM, TID
     Route: 030
     Dates: start: 20201119, end: 20201126
  8. PRALIDOXIME IODIDE [Concomitant]
     Indication: CHEMICAL POISONING
     Dosage: 4040 MILLILITER, TID
     Route: 041
     Dates: start: 20201119, end: 20201126
  9. TIENAM [Suspect]
     Active Substance: CILASTATIN SODIUM\IMIPENEM
     Indication: PNEUMONIA ASPIRATION
     Dosage: 0.5 GRAM, TID
     Route: 041
     Dates: start: 20201122, end: 20201127

REACTIONS (4)
  - Panic reaction [Not Recovered/Not Resolved]
  - Disorganised speech [Not Recovered/Not Resolved]
  - Suicidal ideation [Not Recovered/Not Resolved]
  - Mania [Not Recovered/Not Resolved]

NARRATIVE: CASE EVENT DATE: 20201127
